FAERS Safety Report 14166973 (Version 1)
Quarter: 2017Q4

REPORT INFORMATION
  Report Type: Spontaneous
  Country: US (occurrence: US)
  Receive Date: 20171107
  Receipt Date: 20171107
  Transmission Date: 20180321
  Serious: No
  Sender: FDA-Public Use
  Company Number: US-BAYER-2017-202737

PATIENT
  Sex: Female

DRUGS (3)
  1. ISOPRENALINE [Concomitant]
     Active Substance: ISOPROTERENOL HYDROCHLORIDE
     Dosage: UNK 1 AM / 1 PM
     Route: 048
     Dates: start: 201604
  2. CLARITIN [Suspect]
     Active Substance: LORATADINE
     Indication: HYPERSENSITIVITY
     Dosage: UNK 1 DAILY AT 8 PM
     Route: 048
  3. CLARITIN [Suspect]
     Active Substance: LORATADINE
     Indication: NASOPHARYNGITIS

REACTIONS (1)
  - Palpitations [Unknown]

NARRATIVE: CASE EVENT DATE: 201710
